FAERS Safety Report 5860916-6 (Version None)
Quarter: 2008Q3

REPORT INFORMATION
  Report Type: 
  Country: None (occurrence: None)
  Receive Date: 20080827
  Receipt Date: 20080102
  Transmission Date: 20090109
  Serious: No
  Sender: FDA-Public Use
  Company Number: US-ABBOTT-08P-163-0432381-00

PATIENT
  Sex: Male
  Weight: 77.18 kg

DRUGS (5)
  1. NIASPAN [Suspect]
     Indication: BLOOD CHOLESTEROL
     Dosage: WHITE
     Route: 048
     Dates: start: 20070102
  2. NIASPAN [Suspect]
     Dosage: EXTENDED-RELEASE; ORANGE
     Route: 048
     Dates: start: 20070921
  3. ACETYLSALICYLIC ACID SRT [Concomitant]
     Indication: DRUG USE FOR UNKNOWN INDICATION
  4. GEMFIBROZIL [Concomitant]
     Indication: BLOOD CHOLESTEROL
     Dosage: TABLETS
  5. GEMFIBROZIL [Concomitant]
     Indication: BLOOD TRIGLYCERIDES

REACTIONS (1)
  - FLUSHING [None]
